FAERS Safety Report 10149407 (Version 1)
Quarter: 2014Q2

REPORT INFORMATION
  Report Type: Spontaneous
  Country: CN (occurrence: CN)
  Receive Date: 20140502
  Receipt Date: 20140502
  Transmission Date: 20141212
  Serious: Yes (Hospitalization)
  Sender: FDA-Public Use
  Company Number: CN-SA-2014SA053372

PATIENT
  Age: 79 Year
  Sex: Male
  Weight: 56 kg

DRUGS (2)
  1. CLOPIDOGREL BISULFATE [Suspect]
     Indication: CARDIAC FAILURE
     Route: 048
     Dates: start: 20131118, end: 20131118
  2. ASPIRIN [Suspect]
     Indication: PRODUCT USED FOR UNKNOWN INDICATION
     Route: 048
     Dates: start: 20131118

REACTIONS (13)
  - Loss of consciousness [Recovered/Resolved]
  - Unresponsive to stimuli [Recovering/Resolving]
  - Peptic ulcer haemorrhage [Recovering/Resolving]
  - Haematemesis [Recovering/Resolving]
  - Haemoglobin decreased [Recovering/Resolving]
  - Melaena [Not Recovered/Not Resolved]
  - Duodenal ulcer [Recovering/Resolving]
  - Palpitations [Recovering/Resolving]
  - Chest discomfort [Recovering/Resolving]
  - Chest discomfort [Recovering/Resolving]
  - Pallor [Recovering/Resolving]
  - Glassy eyes [Recovering/Resolving]
  - Urinary incontinence [Recovering/Resolving]
